FAERS Safety Report 12919823 (Version 1)
Quarter: 2016Q4

REPORT INFORMATION
  Report Type: Spontaneous
  Country: US (occurrence: US)
  Receive Date: 20161108
  Receipt Date: 20161108
  Transmission Date: 20170207
  Serious: Yes (Other)
  Sender: FDA-Public Use
  Company Number: US-ENDO PHARMACEUTICALS INC.-2016-003473

PATIENT
  Sex: Male
  Weight: 88.53 kg

DRUGS (1)
  1. IBUPROFEN TABLETS [Suspect]
     Active Substance: IBUPROFEN
     Indication: PAIN
     Dosage: UPTO 12 PILLS A DAY
     Route: 065
     Dates: start: 2008

REACTIONS (1)
  - Gastric ulcer [Recovered/Resolved]

NARRATIVE: CASE EVENT DATE: 2008
